FAERS Safety Report 7488567-0 (Version None)
Quarter: 2011Q2

REPORT INFORMATION
  Report Type: 
  Country: None (occurrence: None)
  Receive Date: 20110518
  Receipt Date: 20110405
  Transmission Date: 20111010
  Serious: Yes (Other)
  Sender: FDA-Public Use
  Company Number: US-BAYER-201039026NA

PATIENT
  Age: 21 Year
  Sex: Female
  Weight: 107 kg

DRUGS (3)
  1. YASMIN [Suspect]
     Indication: PRODUCT USED FOR UNKNOWN INDICATION
     Route: 048
     Dates: start: 20030506, end: 20081101
  2. VITAMINS [Concomitant]
  3. ACETAMINOPHEN [Concomitant]

REACTIONS (2)
  - CHOLECYSTITIS CHRONIC [None]
  - CHOLECYSTECTOMY [None]
